FAERS Safety Report 7461541-6 (Version None)
Quarter: 2011Q2

REPORT INFORMATION
  Report Type: 
  Country: None (occurrence: None)
  Receive Date: 20110428
  Receipt Date: 20110415
  Transmission Date: 20111010
  Serious: Yes (Other)
  Sender: FDA-Public Use
  Company Number: 2011P1005455

PATIENT
  Age: 78 Year
  Sex: Female
  Weight: 77.1115 kg

DRUGS (11)
  1. KLOR-CON [Concomitant]
  2. NYSTATIN + TRIAMCINOLONE ACETONIDE [Suspect]
     Indication: VULVOVAGINAL PRURITUS
     Dosage: 1 APPLICATORFUL, X1,VAG
     Route: 067
     Dates: start: 20110124, end: 20110101
  3. NYSTATIN + TRIAMCINOLONE ACETONIDE [Suspect]
     Indication: VULVOVAGINAL BURNING SENSATION
     Dosage: 1 APPLICATORFUL, X1,VAG
     Route: 067
     Dates: start: 20110124, end: 20110101
  4. LEVOXYL [Concomitant]
  5. VERAPAMIL [Concomitant]
  6. CHLORTHALIDONE [Concomitant]
  7. COUMADIN [Concomitant]
  8. ASPIRIN [Concomitant]
  9. TERCONAZOLE [Suspect]
     Indication: VULVOVAGINAL PRURITUS
     Dosage: 1 APPLICATORFUL, X1, VAG
     Route: 067
     Dates: start: 20110124, end: 20110101
  10. TERCONAZOLE [Suspect]
     Indication: VULVOVAGINAL BURNING SENSATION
     Dosage: 1 APPLICATORFUL, X1, VAG
     Route: 067
     Dates: start: 20110124, end: 20110101
  11. XANAX [Concomitant]

REACTIONS (5)
  - VULVOVAGINAL BURNING SENSATION [None]
  - VULVOVAGINAL PRURITUS [None]
  - URINARY TRACT INFECTION [None]
  - DRUG DISPENSING ERROR [None]
  - GENITAL PAIN [None]
